FAERS Safety Report 15094670 (Version 2)
Quarter: 2018Q3

REPORT INFORMATION
  Report Type: Other
  Country: DE (occurrence: DE)
  Receive Date: 20180701
  Receipt Date: 20180701
  Transmission Date: 20181010
  Serious: Yes (Death, Life-Threatening, Hospitalization, Other)
  Sender: FDA-Public Use
  Company Number: DE-DEXPHARM-20180433

PATIENT
  Sex: Male

DRUGS (6)
  1. PANTOPRAZOLE [Suspect]
     Active Substance: PANTOPRAZOLE
     Indication: GASTRITIS PROPHYLAXIS
     Dosage: 1?0?0
  2. METAMIZOLE [Suspect]
     Active Substance: METAMIZOLE
     Indication: ANALGESIC THERAPY
  3. RAMIPRIL 5 MG, HYDROCHLOROTHIAZIDE 25 MG [Suspect]
     Active Substance: HYDROCHLOROTHIAZIDE\RAMIPRIL
     Dosage: 1?0?0
  4. DICLOFENAC [Suspect]
     Active Substance: DICLOFENAC
     Indication: PROPHYLAXIS
     Dosage: 1?0?0
  5. BISOPROLOL [Suspect]
     Active Substance: BISOPROLOL
     Dosage: 1?0?0
  6. RAMIPRIL 5 MG, HYDROCHLOROTHIAZIDE 25 MG [Suspect]
     Active Substance: HYDROCHLOROTHIAZIDE\RAMIPRIL
     Dosage: 1?0?0.5

REACTIONS (10)
  - Anaemia [Fatal]
  - Multiple organ dysfunction syndrome [Fatal]
  - Pancytopenia [Fatal]
  - Condition aggravated [None]
  - Septic shock [Fatal]
  - Agranulocytosis [Fatal]
  - Renal failure [Fatal]
  - Leptotrichia infection [None]
  - Abscess neck [None]
  - Leukocytosis [None]
